FAERS Safety Report 8950660 (Version 1)
Quarter: 2012Q4

REPORT INFORMATION
  Report Type: 
  Country: FR (occurrence: FR)
  Receive Date: 20121207
  Receipt Date: 20121207
  Transmission Date: 20130627
  Serious: Yes (Death, Life-Threatening, Hospitalization)
  Sender: FDA-Public Use
  Company Number: FR-JNJFOC-20121013293

PATIENT
  Age: 85 None
  Sex: Male
  Weight: 55 kg

DRUGS (11)
  1. XARELTO [Suspect]
     Indication: PRODUCT USED FOR UNKNOWN INDICATION
     Route: 065
     Dates: start: 20121015
  2. XARELTO [Suspect]
     Indication: PRODUCT USED FOR UNKNOWN INDICATION
     Route: 065
     Dates: start: 201208
  3. KARDEGIC [Suspect]
     Indication: PRODUCT USED FOR UNKNOWN INDICATION
     Route: 065
  4. DIFFU K [Concomitant]
     Route: 065
  5. TEMESTA [Concomitant]
     Route: 065
  6. ESOMEPRAZOLE [Concomitant]
     Route: 065
  7. LASILIX [Concomitant]
     Route: 065
  8. PERMIXON [Concomitant]
     Route: 065
  9. SEROPRAM B [Concomitant]
     Route: 065
  10. BISOPROLOL [Concomitant]
     Route: 065
  11. DOMPERIDONE [Concomitant]
     Route: 065

REACTIONS (6)
  - Ischaemic stroke [Fatal]
  - Cerebral haemorrhage [Unknown]
  - Gastrointestinal haemorrhage [Unknown]
  - Epistaxis [Unknown]
  - Vomiting [Unknown]
  - Rectal haemorrhage [Unknown]
